FAERS Safety Report 10985279 (Version 1)
Quarter: 2015Q2

REPORT INFORMATION
  Report Type: Spontaneous
  Country: US (occurrence: US)
  Receive Date: 20150404
  Receipt Date: 20150404
  Transmission Date: 20150821
  Serious: No
  Sender: FDA-Public Use
  Company Number: US-SA-2014SA075770

PATIENT
  Age: 60 Year
  Sex: Female

DRUGS (2)
  1. TRIAMCINOLONE ACETONIDE. [Concomitant]
     Active Substance: TRIAMCINOLONE ACETONIDE
  2. ALLEGRA-D [Suspect]
     Active Substance: FEXOFENADINE\PSEUDOEPHEDRINE
     Indication: PRODUCT USED FOR UNKNOWN INDICATION
     Route: 048

REACTIONS (4)
  - Hearing impaired [Recovering/Resolving]
  - Oropharyngeal pain [Recovering/Resolving]
  - Aphonia [Recovering/Resolving]
  - Condition aggravated [Unknown]
